FAERS Safety Report 5135776-1 (Version None)
Quarter: 2006Q4

REPORT INFORMATION
  Report Type: 
  Country: None (occurrence: None)
  Receive Date: 20061020
  Receipt Date: 20061012
  Transmission Date: 20070319
  Serious: Yes (Death, Life-Threatening, Hospitalization)
  Sender: FDA-Public Use
  Company Number: HQWYE491306JUN03

PATIENT
  Age: 68 Year
  Sex: Male
  Weight: 88.08 kg

DRUGS (19)
  1. MYLOTARG [Suspect]
     Indication: ACUTE MYELOID LEUKAEMIA
     Dosage: SEE IMAGE
     Route: 042
     Dates: start: 20030519, end: 20030519
  2. MYLOTARG [Suspect]
     Indication: ACUTE MYELOID LEUKAEMIA
     Dosage: SEE IMAGE
     Route: 042
     Dates: start: 20030529, end: 20030529
  3. VANCOMYCIN [Concomitant]
  4. ALLOPURINOL [Concomitant]
  5. CETIRIZINE (CETIRIZINE) [Concomitant]
  6. FLUTICASONE PROPIONATE [Concomitant]
  7. SULFADIAZINE SILVER (SULFADIAZINE SILVER) [Concomitant]
  8. QUINAPRIL HCL [Concomitant]
  9. PANTOPRAZOLE SODIUM [Concomitant]
  10. SENNA (SENNA) [Concomitant]
  11. DOCUSATE SODIUM (DOCUSATE SODIUM) [Concomitant]
  12. DIGOXIN [Concomitant]
  13. OXYCODONE HCL [Concomitant]
  14. TRAZODONE HCL [Concomitant]
  15. PROMETHIAZINE (PROMETHAZINE) [Concomitant]
  16. ACETAMINOPHEN [Concomitant]
  17. DIPHENHYDRAMINE HCL [Concomitant]
  18. DIPHENHYDRAMINE HCL [Concomitant]
  19. DIPHENHYDRAMINE HCL [Concomitant]

REACTIONS (32)
  - ABDOMINAL TENDERNESS [None]
  - ACUTE RESPIRATORY DISTRESS SYNDROME [None]
  - ATRIAL FIBRILLATION [None]
  - BLOOD BICARBONATE DECREASED [None]
  - CHILLS [None]
  - CONFUSIONAL STATE [None]
  - DRUG ERUPTION [None]
  - ENTEROCOCCAL SEPSIS [None]
  - ERYTHEMA MULTIFORME [None]
  - FAECAL INCONTINENCE [None]
  - FALL [None]
  - FEBRILE NEUTROPENIA [None]
  - GASTROINTESTINAL HAEMORRHAGE [None]
  - HAEMODIALYSIS [None]
  - HAEMOGLOBIN DECREASED [None]
  - HEPATIC FAILURE [None]
  - MULTI-ORGAN FAILURE [None]
  - MYALGIA [None]
  - NASOPHARYNGEAL DISORDER [None]
  - ORAL MUCOSAL EXFOLIATION [None]
  - OSTEOPENIA [None]
  - PAIN [None]
  - PCO2 DECREASED [None]
  - PLATELET COUNT DECREASED [None]
  - PO2 DECREASED [None]
  - RALES [None]
  - RENAL FAILURE ACUTE [None]
  - RENAL TUBULAR NECROSIS [None]
  - SEPTIC SHOCK [None]
  - STEVENS-JOHNSON SYNDROME [None]
  - URINARY INCONTINENCE [None]
  - VENTRICULAR TACHYCARDIA [None]
